FAERS Safety Report 25954623 (Version 1)
Quarter: 2025Q4

REPORT INFORMATION
  Report Type: Spontaneous
  Country: US (occurrence: US)
  Receive Date: 20251024
  Receipt Date: 20251024
  Transmission Date: 20260117
  Serious: Yes (Hospitalization)
  Sender: ABBVIE
  Company Number: US-ABBVIE-6515366

PATIENT
  Sex: Male

DRUGS (2)
  1. DEPAKOTE [Suspect]
     Active Substance: DIVALPROEX SODIUM
     Indication: Product used for unknown indication
     Route: 048
  2. KEPPRA [Concomitant]
     Active Substance: LEVETIRACETAM
     Indication: Product used for unknown indication
     Dosage: THE CURRENT DOSAGE IS 1500 MG IN THE MORNING AND 1500 MG AT NIGHT

REACTIONS (3)
  - Epilepsy [Recovering/Resolving]
  - Drug ineffective [Unknown]
  - Coma [Unknown]

NARRATIVE: CASE EVENT DATE: 20240101
